FAERS Safety Report 14355723 (Version 7)
Quarter: 2019Q4

REPORT INFORMATION
  Report Type: Spontaneous
  Country: US (occurrence: US)
  Receive Date: 20180105
  Receipt Date: 20191028
  Transmission Date: 20200122
  Serious: No
  Sender: FDA-Public Use
  Company Number: US-PFIZER INC-2018003339

PATIENT
  Age: 60 Year
  Sex: Female
  Weight: 57 kg

DRUGS (8)
  1. REVATIO [Suspect]
     Active Substance: SILDENAFIL CITRATE
     Dosage: 60 MG, 3X/DAY, (TAKE THREE TABLETS BY MOUTH EVERY 8 HOURS)
     Route: 048
     Dates: start: 20140912
  2. WARFARIN [Concomitant]
     Active Substance: WARFARIN
     Dosage: 2 MG, (MON, TUE, THUR, FRI, AND SAT)
     Route: 048
     Dates: start: 2005
  3. REVATIO [Suspect]
     Active Substance: SILDENAFIL CITRATE
     Indication: PULMONARY ARTERIAL HYPERTENSION
     Dosage: 60MG, 3 TIMES A DAY (20 MG TABLET, THREE TABLETS THREE TIMES A DAY)
     Route: 048
     Dates: start: 2006
  4. TYVASO [Concomitant]
     Active Substance: TREPROSTINIL
     Indication: PULMONARY ARTERIAL HYPERTENSION
     Dosage: (1.74/2.9ML) FOUR TIMES A DAY
     Dates: start: 2010
  5. WARFARIN [Concomitant]
     Active Substance: WARFARIN
     Indication: PULMONARY THROMBOSIS
     Dosage: 4 MG, PER A DAY
     Route: 048
     Dates: start: 2005
  6. WARFARIN [Concomitant]
     Active Substance: WARFARIN
     Dosage: 3 MG (SUN, WED)
     Route: 048
     Dates: start: 2005
  7. VALSARTAN/HYDROCHLOROTHIAZIDE [Concomitant]
     Active Substance: HYDROCHLOROTHIAZIDE\VALSARTAN
     Indication: PULMONARY ARTERIAL HYPERTENSION
     Dosage: 1 TABLET DAILY
     Route: 048
     Dates: start: 2006
  8. POTASSIUM [Concomitant]
     Active Substance: POTASSIUM
     Indication: MINERAL SUPPLEMENTATION
     Dosage: 10 MEQ, DAILY
     Route: 048

REACTIONS (3)
  - Product use issue [Unknown]
  - Nasopharyngitis [Recovering/Resolving]
  - Off label use [Unknown]

NARRATIVE: CASE EVENT DATE: 2006
